FAERS Safety Report 9337188 (Version 2)
Quarter: 2013Q3

REPORT INFORMATION
  Report Type: Report from Study
  Country: CA (occurrence: CA)
  Receive Date: 20130607
  Receipt Date: 20130712
  Transmission Date: 20140515
  Serious: Yes (Hospitalization, Other)
  Sender: FDA-Public Use
  Company Number: CA-ABBOTT-13P-028-1100231-00

PATIENT
  Age: 60 Year
  Sex: Male
  Weight: 61.9 kg

DRUGS (5)
  1. HUMIRA [Suspect]
     Indication: ANKYLOSING SPONDYLITIS
     Route: 058
     Dates: start: 20110404, end: 20130506
  2. METHOTREXATE [Concomitant]
     Indication: PRODUCT USED FOR UNKNOWN INDICATION
     Route: 048
  3. FOLIC ACID [Concomitant]
     Indication: PRODUCT USED FOR UNKNOWN INDICATION
     Route: 048
  4. PARIET [Concomitant]
     Indication: PRODUCT USED FOR UNKNOWN INDICATION
  5. PRAVACHOL [Concomitant]
     Indication: PRODUCT USED FOR UNKNOWN INDICATION

REACTIONS (12)
  - Renal failure acute [Recovered/Resolved]
  - Hepatic failure [Recovered/Resolved]
  - Transaminases increased [Recovered/Resolved]
  - Gastroenteritis viral [Recovered/Resolved]
  - Diarrhoea [Recovered/Resolved]
  - Toxoplasmosis [Unknown]
  - Immune system disorder [Not Recovered/Not Resolved]
  - Eye infection toxoplasmal [Unknown]
  - Oral herpes [Unknown]
  - Influenza [Unknown]
  - Rash [Recovering/Resolving]
  - Dehydration [Unknown]
